FAERS Safety Report 24207970 (Version 4)
Quarter: 2024Q4

REPORT INFORMATION
  Report Type: Report from Study
  Country: CN (occurrence: CN)
  Receive Date: 20240814
  Receipt Date: 20241114
  Transmission Date: 20250115
  Serious: Yes (Death, Hospitalization, Other)
  Sender: TAKEDA
  Company Number: CN-TAKEDA-2024TUS080005

PATIENT
  Sex: Female

DRUGS (1)
  1. IXAZOMIB [Suspect]
     Active Substance: IXAZOMIB
     Indication: Plasma cell myeloma
     Dosage: UNK

REACTIONS (4)
  - Death [Fatal]
  - Muscular weakness [Unknown]
  - Dysstasia [Unknown]
  - Pyrexia [Unknown]
